FAERS Safety Report 9713845 (Version 1)
Quarter: 2013Q4

REPORT INFORMATION
  Report Type: Spontaneous
  Country: US (occurrence: US)
  Receive Date: 20131126
  Receipt Date: 20131126
  Transmission Date: 20140711
  Serious: Yes (Other)
  Sender: FDA-Public Use
  Company Number: US-GLAXOSMITHKLINE-A1050813A

PATIENT
  Age: 53 Year
  Sex: Male

DRUGS (3)
  1. LAMICTAL [Suspect]
     Indication: DEPRESSION
     Route: 048
     Dates: start: 201303
  2. DEPLIN [Concomitant]
  3. ANTACID [Concomitant]

REACTIONS (11)
  - Bipolar disorder [Not Recovered/Not Resolved]
  - Adverse drug reaction [Not Recovered/Not Resolved]
  - Drug administration error [Not Recovered/Not Resolved]
  - Vertigo [Not Recovered/Not Resolved]
  - Tremor [Not Recovered/Not Resolved]
  - Psoriasis [Not Recovered/Not Resolved]
  - Alopecia [Not Recovered/Not Resolved]
  - Dandruff [Not Recovered/Not Resolved]
  - Blepharospasm [Not Recovered/Not Resolved]
  - Off label use [Unknown]
  - Treatment noncompliance [Not Recovered/Not Resolved]
